FAERS Safety Report 7039864-4 (Version None)
Quarter: 2010Q3

REPORT INFORMATION
  Report Type: 
  Country: None (occurrence: None)
  Receive Date: 20100929
  Receipt Date: 20100708
  Transmission Date: 20110219
  Serious: Yes (Other)
  Sender: FDA-Public Use
  Company Number: US-WYE-H16046010

PATIENT
  Sex: Female

DRUGS (1)
  1. PRISTIQ [Suspect]
     Indication: DEPRESSION
     Dosage: 50 MG UNSPECIFIED FREQUENCY, ORAL
     Route: 048
     Dates: start: 20100601, end: 20100601

REACTIONS (1)
  - NAUSEA [None]
